FAERS Safety Report 24005476 (Version 1)
Quarter: 2024Q2

REPORT INFORMATION
  Report Type: Spontaneous
  Country: US (occurrence: US)
  Receive Date: 20240624
  Receipt Date: 20240624
  Transmission Date: 20240716
  Serious: Yes (Other)
  Sender: FDA-Public Use
  Company Number: US-MYLANLABS-2024M1055760

PATIENT
  Age: 11 Year
  Sex: Male

DRUGS (6)
  1. PREDNISONE [Suspect]
     Active Substance: PREDNISONE
     Indication: Interstitial lung disease
     Dosage: INITIAL DOSAGE NOT STATED
     Route: 048
  2. PREDNISONE [Suspect]
     Active Substance: PREDNISONE
     Dosage: 10 MILLIGRAM, QD
     Route: 048
  3. RAPAMYCIN [Suspect]
     Active Substance: SIROLIMUS
     Indication: Interstitial lung disease
     Dosage: 2 MILLIGRAM, QD
     Route: 065
  4. METHYLPREDNISOLONE [Concomitant]
     Active Substance: METHYLPREDNISOLONE
     Indication: Interstitial lung disease
     Dosage: 30 MILLIGRAM/KILOGRAM, ON 3 CONSECUTIVE DAYS MONTHLY
     Route: 065
  5. Immunoglobulin [Concomitant]
     Indication: Interstitial lung disease
     Dosage: 0.5 MILLIGRAM/KILOGRAM, EVERY 4 TO 6 WEEKS
     Route: 042
  6. MYCOPHENOLATE MOFETIL [Concomitant]
     Active Substance: MYCOPHENOLATE MOFETIL
     Indication: Interstitial lung disease
     Dosage: 500 MILLIGRAM, BID
     Route: 042

REACTIONS (2)
  - Rebound effect [Recovering/Resolving]
  - Interstitial lung disease [Recovering/Resolving]
